FAERS Safety Report 11964747 (Version 1)
Quarter: 2016Q1

REPORT INFORMATION
  Report Type: Spontaneous
  Country: US (occurrence: None)
  Receive Date: 20160122
  Receipt Date: 20160122
  Transmission Date: 20160526
  Serious: Yes (Disabling)
  Sender: FDA-Public Use
  Company Number: None

PATIENT
  Sex: Female

DRUGS (1)
  1. RESTASIS [Suspect]
     Active Substance: CYCLOSPORINE
     Indication: DRY EYE
     Dosage: 1 DROP INTO EACH EYE, TWICE DAILY, INTO THE EYE

REACTIONS (4)
  - Eye irritation [None]
  - Vision blurred [None]
  - Eye pain [None]
  - Product packaging issue [None]

NARRATIVE: CASE EVENT DATE: 20150303
